FAERS Safety Report 8983666 (Version 1)
Quarter: 2012Q4

REPORT INFORMATION
  Report Type: 
  Country: US (occurrence: US)
  Receive Date: 20121224
  Receipt Date: 20121224
  Transmission Date: 20130627
  Serious: Yes (Hospitalization, Other)
  Sender: FDA-Public Use
  Company Number: US-JNJCP-30000137754

PATIENT
  Age: 18 Year
  Sex: Male

DRUGS (6)
  1. NEUTROGENA SPECTRUM PLUS ADVANCED SUNBLOCK SPF 100 PLUS HELIOPLEX 360 [Suspect]
     Indication: PREVENTION
     Dosage: light coating on face, once a day on weekends
     Route: 061
     Dates: start: 201105
  2. NO DRUG NAME [Concomitant]
  3. NO DRUG NAME [Concomitant]
  4. NO DRUG NAME [Concomitant]
  5. NO DRUG NAME [Concomitant]
  6. NO DRUG NAME [Concomitant]

REACTIONS (1)
  - Hypersensitivity [Recovered/Resolved]
